FAERS Safety Report 6027941-6 (Version None)
Quarter: 2009Q1

REPORT INFORMATION
  Report Type: 
  Country: None (occurrence: None)
  Receive Date: 20090105
  Receipt Date: 20081229
  Transmission Date: 20090719
  Serious: Yes (Other)
  Sender: FDA-Public Use
  Company Number: PHEH2008US11429

PATIENT
  Age: 80 Year
  Sex: Female

DRUGS (1)
  1. ZOMETA [Suspect]
     Dosage: UNK

REACTIONS (4)
  - DIZZINESS [None]
  - MALAISE [None]
  - PAIN IN JAW [None]
  - TOOTH DISORDER [None]
